FAERS Safety Report 11872471 (Version 2)
Quarter: 2016Q1

REPORT INFORMATION
  Report Type: Spontaneous
  Country: JP (occurrence: JP)
  Receive Date: 20151228
  Receipt Date: 20160113
  Transmission Date: 20160526
  Serious: Yes (Other)
  Sender: FDA-Public Use
  Company Number: JP-TEVA-621437ISR

PATIENT
  Age: 40 Year
  Sex: Male

DRUGS (1)
  1. ACICLOVIR [Suspect]
     Active Substance: ACYCLOVIR
     Route: 042

REACTIONS (1)
  - Retinal detachment [Unknown]
